FAERS Safety Report 5399331-0 (Version None)
Quarter: 2007Q3

REPORT INFORMATION
  Report Type: 
  Country: None (occurrence: None)
  Receive Date: 20070727
  Receipt Date: 20070718
  Transmission Date: 20080115
  Serious: Yes (Death)
  Sender: FDA-Public Use
  Company Number: JP-ROCHE-453977

PATIENT
  Age: 12 Year
  Sex: Male

DRUGS (2)
  1. TAMIFLU [Suspect]
     Route: 048
     Dates: start: 20060703, end: 20060703
  2. CALONAL [Concomitant]
     Route: 048
     Dates: start: 20060703, end: 20060703

REACTIONS (1)
  - PELVIC FRACTURE [None]
